FAERS Safety Report 5150021-9 (Version None)
Quarter: 2006Q4

REPORT INFORMATION
  Report Type: 
  Country: None (occurrence: None)
  Receive Date: 20061108
  Receipt Date: 20061027
  Transmission Date: 20070319
  Serious: Yes (Hospitalization)
  Sender: FDA-Public Use
  Company Number: 231865

PATIENT
  Age: 52 Year
  Sex: Female

DRUGS (3)
  1. AVASTIN [Suspect]
     Indication: ADENOCARCINOMA
     Dosage: 5 MG/KG
  2. CARBOPLATIN [Concomitant]
  3. TAXOL [Concomitant]

REACTIONS (4)
  - BLOOD CREATININE INCREASED [None]
  - BLOOD UREA INCREASED [None]
  - BONE MARROW FAILURE [None]
  - DISSEMINATED INTRAVASCULAR COAGULATION [None]
